FAERS Safety Report 20467286 (Version 1)
Quarter: 2022Q1

REPORT INFORMATION
  Report Type: Spontaneous
  Country: FR (occurrence: FR)
  Receive Date: 20220214
  Receipt Date: 20220214
  Transmission Date: 20220424
  Serious: Yes (Hospitalization, Congenital Anomaly, Other)
  Sender: FDA-Public Use
  Company Number: FR-ABBVIE-22K-056-4272559-00

PATIENT
  Sex: Male

DRUGS (4)
  1. VALPROATE SODIUM [Suspect]
     Active Substance: VALPROATE SODIUM
     Indication: Maternal exposure timing unspecified
     Route: 064
  2. CARBAMAZEPINE [Suspect]
     Active Substance: CARBAMAZEPINE
     Indication: Maternal exposure timing unspecified
     Route: 064
  3. FOLIC ACID [Concomitant]
     Active Substance: FOLIC ACID
     Indication: Maternal exposure timing unspecified
  4. FOLIC ACID [Concomitant]
     Active Substance: FOLIC ACID
     Indication: Maternal exposure timing unspecified

REACTIONS (18)
  - Congenital hand malformation [Unknown]
  - Dysmorphism [Unknown]
  - Gastrooesophageal reflux disease [Not Recovered/Not Resolved]
  - Hypotonia [Unknown]
  - Psychomotor skills impaired [Unknown]
  - Cognitive disorder [Unknown]
  - Language disorder [Unknown]
  - Ear, nose and throat disorder [Unknown]
  - Cryptorchism [Unknown]
  - Inguinal hernia [Unknown]
  - Astigmatism [Unknown]
  - Heterophoria [Unknown]
  - Torticollis [Unknown]
  - Strabismus [Unknown]
  - Intellectual disability [Unknown]
  - Otitis media [Unknown]
  - Learning disorder [Unknown]
  - Foetal exposure during pregnancy [Unknown]

NARRATIVE: CASE EVENT DATE: 20020607
